FAERS Safety Report 21606086 (Version 13)
Quarter: 2024Q2

REPORT INFORMATION
  Report Type: Report from Study
  Country: US (occurrence: US)
  Receive Date: 20221117
  Receipt Date: 20240510
  Transmission Date: 20240716
  Serious: Yes (Death, Hospitalization, Other)
  Sender: FDA-Public Use
  Company Number: US-ACADIA PHARMACEUTICALS INC.-ACA-2022-PIM-003870

PATIENT
  Sex: Male

DRUGS (11)
  1. NUPLAZID [Suspect]
     Active Substance: PIMAVANSERIN TARTRATE
     Indication: Parkinson^s disease psychosis
     Dosage: 34 MILLIGRAM, QD
     Route: 065
     Dates: start: 20210720
  2. NUPLAZID [Suspect]
     Active Substance: PIMAVANSERIN TARTRATE
     Indication: Parkinson^s disease
     Dosage: 34 MILLIGRAM, QD
     Route: 048
     Dates: start: 20220607
  3. NUPLAZID [Suspect]
     Active Substance: PIMAVANSERIN TARTRATE
     Dosage: 34 MILLIGRAM, QD, CRUSH THE PILLS TO SWALLOW THEM
     Route: 048
     Dates: end: 20240403
  4. MOBIC [Concomitant]
     Active Substance: MELOXICAM
     Dosage: 15 MILLIGRAM
  5. ASPIRIN [Concomitant]
     Active Substance: ASPIRIN
     Dosage: 81 MILLIGRAM, QD EC
  6. MELATONIN [Concomitant]
     Active Substance: MELATONIN
     Dosage: 5 MILLIGRAM
  7. CARBIDOPA\LEVODOPA [Concomitant]
     Active Substance: CARBIDOPA\LEVODOPA
     Dosage: 10/100, 1.5 TABS QID
  8. MIDODRINE [Concomitant]
     Active Substance: MIDODRINE
     Dosage: 2.5 MG TID
  9. ATIVAN [Concomitant]
     Active Substance: LORAZEPAM
     Dosage: 0.5 MG
  10. ENTACAPONE [Concomitant]
     Active Substance: ENTACAPONE
     Dosage: 200 MILLIGRAM, QD
  11. FLUDROCORTISONE [Concomitant]
     Active Substance: FLUDROCORTISONE
     Dosage: 0.1 MG DAILY

REACTIONS (32)
  - Death [Fatal]
  - Limb injury [Recovered/Resolved]
  - Head injury [Recovered/Resolved]
  - Face injury [Recovered/Resolved]
  - Urinary tract infection [Not Recovered/Not Resolved]
  - Mental disorder [Not Recovered/Not Resolved]
  - Sepsis [Not Recovered/Not Resolved]
  - Amnesia [Not Recovered/Not Resolved]
  - Fall [Not Recovered/Not Resolved]
  - Confusional state [Not Recovered/Not Resolved]
  - Product dose omission issue [Unknown]
  - Dysphagia [Unknown]
  - Product dose omission issue [Recovered/Resolved]
  - Condition aggravated [Recovered/Resolved]
  - Gait inability [Not Recovered/Not Resolved]
  - Abnormal behaviour [Not Recovered/Not Resolved]
  - Wrong technique in product usage process [Not Recovered/Not Resolved]
  - Haematological infection [Unknown]
  - Urinary tract infection [Unknown]
  - Mobility decreased [Unknown]
  - Dementia with Lewy bodies [Not Recovered/Not Resolved]
  - Urinary tract infection [Unknown]
  - Nonspecific reaction [Unknown]
  - Musculoskeletal disorder [Not Recovered/Not Resolved]
  - Dysphagia [Recovered/Resolved]
  - Candida infection [Recovered/Resolved]
  - Delirium [Not Recovered/Not Resolved]
  - Aggression [Not Recovered/Not Resolved]
  - Fall [Not Recovered/Not Resolved]
  - Hallucination [Not Recovered/Not Resolved]
  - Gait disturbance [Not Recovered/Not Resolved]
  - Agitation [Recovered/Resolved]

NARRATIVE: CASE EVENT DATE: 20200101
